FAERS Safety Report 6414786-8 (Version None)
Quarter: 2009Q4

REPORT INFORMATION
  Report Type: 
  Country: None (occurrence: None)
  Receive Date: 20091026
  Receipt Date: 20091026
  Transmission Date: 20100525
  Serious: Yes (Other)
  Sender: FDA-Public Use
  Company Number: None

PATIENT
  Sex: Female
  Weight: 91 kg

DRUGS (1)
  1. OPTIRAY 320 [Suspect]
     Indication: COMPUTERISED TOMOGRAM
     Dosage: 125 ML
     Dates: start: 20090824, end: 20090824

REACTIONS (4)
  - ERYTHEMA [None]
  - FEELING HOT [None]
  - HEADACHE [None]
  - URTICARIA [None]
